FAERS Safety Report 5290168-X (Version None)
Quarter: 2007Q2

REPORT INFORMATION
  Report Type: 
  Country: None (occurrence: None)
  Receive Date: 20070402
  Receipt Date: 20070319
  Transmission Date: 20071010
  Serious: No
  Sender: FDA-Public Use
  Company Number: FSC_0079_2007

PATIENT
  Age: 82 Year
  Sex: Female

DRUGS (4)
  1. ISOPTIN [Suspect]
     Dosage: DF UNK UNK
  2. PIOGLITAZONE HCL [Suspect]
     Dosage: 15 MG QD UNK
     Dates: start: 20060801, end: 20061201
  3. NATEGLINIDE [Concomitant]
  4. CINNAMON OIL [Concomitant]

REACTIONS (2)
  - DIZZINESS [None]
  - VISION BLURRED [None]
